FAERS Safety Report 5014539-1 (Version None)
Quarter: 2006Q2

REPORT INFORMATION
  Report Type: 
  Country: None (occurrence: None)
  Receive Date: 20060525
  Receipt Date: 20060518
  Transmission Date: 20061013
  Serious: Yes (Hospitalization, Other)
  Sender: FDA-Public Use
  Company Number: 2006065713

PATIENT
  Age: 34 Year
  Sex: Female

DRUGS (4)
  1. DILANTIN [Suspect]
     Indication: EPILEPSY
     Dosage: 3 DOSES (2 IN 1 D), ORAL
     Route: 048
  2. PEPCID COMPLETE (CALCIUM CARBOANTE, FAMOTIDINE, MAGNESIUM HYDROXIDE) [Suspect]
     Indication: GASTROINTESTINAL DISORDER
     Dosage: 1 DOSE (1 IN 1 D), ORAL
     Route: 048
     Dates: start: 20060501
  3. PHENOBARBITAL TAB [Suspect]
     Indication: EPILEPSY
     Dosage: 3 DOSES (1 IN 1 D)
  4. IBUPROFEN [Concomitant]

REACTIONS (3)
  - CONVULSION [None]
  - DRUG INTERACTION [None]
  - GASTRIC DISORDER [None]
